FAERS Safety Report 8823383 (Version 2)
Quarter: 2014Q2

REPORT INFORMATION
  Report Type: Spontaneous
  Country: US (occurrence: US)
  Receive Date: 20121003
  Receipt Date: 20140424
  Transmission Date: 20141212
  Serious: Yes (Other)
  Sender: FDA-Public Use
  Company Number: US-ROCHE-794437

PATIENT
  Age: 20 Year
  Sex: Male
  Weight: 122.58 kg

DRUGS (2)
  1. ACCUTANE [Suspect]
     Indication: ACNE CYSTIC
     Route: 065
  2. ACCUTANE [Suspect]
     Route: 065
     Dates: start: 20001014, end: 20010714

REACTIONS (7)
  - Crohn^s disease [Unknown]
  - Anal fistula [Unknown]
  - Depression [Unknown]
  - Inflammatory bowel disease [Unknown]
  - Mental disorder [Unknown]
  - Blood triglycerides increased [Unknown]
  - Dry skin [Unknown]
